FAERS Safety Report 21289707 (Version 1)
Quarter: 2022Q3

REPORT INFORMATION
  Report Type: Spontaneous
  Country: US (occurrence: US)
  Receive Date: 20220902
  Receipt Date: 20220902
  Transmission Date: 20221027
  Serious: Yes (Hospitalization)
  Sender: FDA-Public Use
  Company Number: US-NOVARTISPH-NVSC2022US196705

PATIENT
  Age: 15 Year
  Sex: Male

DRUGS (2)
  1. CARBOPLATIN [Suspect]
     Active Substance: CARBOPLATIN
     Indication: Nongerminomatous germ cell tumour of the CNS
     Dosage: 700 MG/M2 (TWO ROUNDS)
     Route: 065
  2. ETOPOSIDE [Suspect]
     Active Substance: ETOPOSIDE
     Indication: Nongerminomatous germ cell tumour of the CNS
     Dosage: 705 MG/M2 (TWO ROUNDS)
     Route: 065

REACTIONS (4)
  - Diabetes insipidus [Unknown]
  - Hypernatraemia [Unknown]
  - Product use in unapproved indication [Unknown]
  - Product use issue [Unknown]
